FAERS Safety Report 23226962 (Version 1)
Quarter: 2023Q4

REPORT INFORMATION
  Report Type: Spontaneous
  Country: US (occurrence: US)
  Receive Date: 20231124
  Receipt Date: 20231124
  Transmission Date: 20240109
  Serious: Yes (Other)
  Sender: FDA-Public Use
  Company Number: US-ENDO-CASE-0045817

PATIENT
  Sex: Male

DRUGS (16)
  1. PERCOCET [Suspect]
     Active Substance: ACETAMINOPHEN\OXYCODONE HYDROCHLORIDE
  2. ENDOCET [Suspect]
     Active Substance: ACETAMINOPHEN\OXYCODONE HYDROCHLORIDE
  3. BUPRENORPHINE HYDROCHLORIDE [Suspect]
     Active Substance: BUPRENORPHINE HYDROCHLORIDE
  4. ACETAMINOPHEN\HYDROCODONE BITARTRATE [Suspect]
     Active Substance: ACETAMINOPHEN\HYDROCODONE BITARTRATE
  5. NUCYNTA ER [Suspect]
     Active Substance: TAPENTADOL HYDROCHLORIDE
  6. ACETAMINOPHEN\OXYCODONE HYDROCHLORIDE [Suspect]
     Active Substance: ACETAMINOPHEN\OXYCODONE HYDROCHLORIDE
  7. HYDROCODONE [Suspect]
     Active Substance: HYDROCODONE
  8. ACETAMINOPHEN\HYDROCODONE BITARTRATE [Suspect]
     Active Substance: ACETAMINOPHEN\HYDROCODONE BITARTRATE
  9. ABSTRAL [Suspect]
     Active Substance: FENTANYL CITRATE
  10. FENTANYL CITRATE [Suspect]
     Active Substance: FENTANYL CITRATE
  11. OXYCODONE [Suspect]
     Active Substance: OXYCODONE
  12. MS CONTIN [Suspect]
     Active Substance: MORPHINE SULFATE
  13. MORPHINE SULFATE [Suspect]
     Active Substance: MORPHINE SULFATE
  14. KADIAN [Suspect]
     Active Substance: MORPHINE SULFATE
  15. VALIUM [Suspect]
     Active Substance: DIAZEPAM
  16. DEPODUR [Suspect]
     Active Substance: MORPHINE SULFATE

REACTIONS (5)
  - Dependence [Unknown]
  - Withdrawal syndrome [Unknown]
  - Depression [Unknown]
  - Hyperaesthesia [Unknown]
  - Suicidal ideation [Unknown]
